FAERS Safety Report 14514965 (Version 1)
Quarter: 2018Q1

REPORT INFORMATION
  Report Type: Spontaneous
  Country: US (occurrence: US)
  Receive Date: 20180208
  Receipt Date: 20180208
  Transmission Date: 20180509
  Serious: No
  Sender: FDA-Public Use
  Company Number: None

PATIENT
  Age: 63 Year
  Sex: Male

DRUGS (1)
  1. CYCLOSPORINE CAP 25MG MOD [Suspect]
     Active Substance: CYCLOSPORINE
     Indication: HEART TRANSPLANT

REACTIONS (3)
  - Dyspnoea [None]
  - Anaemia [None]
  - Skin cancer [None]

NARRATIVE: CASE EVENT DATE: 20180208
